FAERS Safety Report 6916678-4 (Version None)
Quarter: 2010Q3

REPORT INFORMATION
  Report Type: 
  Country: None (occurrence: None)
  Receive Date: 20100810
  Receipt Date: 20100728
  Transmission Date: 20110219
  Serious: Yes (Other)
  Sender: FDA-Public Use
  Company Number: US-ROCHE-719219

PATIENT
  Sex: Female
  Weight: 68.2 kg

DRUGS (4)
  1. BONIVA [Suspect]
     Indication: OSTEOPOROSIS
     Route: 065
  2. NEXIUM [Concomitant]
  3. ACTONEL [Concomitant]
  4. ATENOLOL [Concomitant]

REACTIONS (1)
  - BONE DISORDER [None]
